FAERS Safety Report 4612320-6 (Version None)
Quarter: 2005Q2

REPORT INFORMATION
  Report Type: 
  Country: None (occurrence: None)
  Receive Date: 20050308
  Receipt Date: 20041104
  Transmission Date: 20051028
  Serious: Yes (Other)
  Sender: FDA-Public Use
  Company Number: 2004UW22821

PATIENT
  Age: 62 Year
  Sex: Male
  Weight: 88.45 kg

DRUGS (6)
  1. CRESTOR [Suspect]
     Indication: BLOOD CHOLESTEROL INCREASED
     Dosage: 10 MG PO
     Route: 048
     Dates: start: 20040801, end: 20041031
  2. CRESTOR [Suspect]
     Indication: BLOOD CHOLESTEROL INCREASED
     Dosage: 10 MG PO
     Route: 048
     Dates: start: 20041103
  3. ACIPHEX [Concomitant]
  4. DIOVAN [Concomitant]
  5. TOPROL-XL [Concomitant]
  6. SYNTHROID [Concomitant]

REACTIONS (1)
  - NEPHROLITHIASIS [None]
